FAERS Safety Report 9002423 (Version 1)
Quarter: 2013Q1

REPORT INFORMATION
  Report Type: Spontaneous
  Country: US (occurrence: US)
  Receive Date: 20130107
  Receipt Date: 20130107
  Transmission Date: 20140127
  Serious: Yes (Other)
  Sender: FDA-Public Use
  Company Number: US-009507513-1301USA000947

PATIENT
  Sex: Male

DRUGS (6)
  1. SINGULAIR [Suspect]
     Route: 048
  2. PROSCAR [Suspect]
     Route: 048
  3. ORNADE [Suspect]
     Route: 048
  4. CLARITIN [Suspect]
     Route: 048
  5. CAPTOPRIL [Suspect]
     Route: 048
  6. VALIUM [Suspect]
     Dosage: 5 MG, PRN
     Route: 048

REACTIONS (2)
  - Diarrhoea [Unknown]
  - Abdominal pain [Unknown]
